FAERS Safety Report 8983026 (Version 1)
Quarter: 2012Q4

REPORT INFORMATION
  Report Type: 
  Country: GB (occurrence: GB)
  Receive Date: 20121221
  Receipt Date: 20121221
  Transmission Date: 20130627
  Serious: Yes (Other)
  Sender: FDA-Public Use
  Company Number: GB-B.I. PHARMACEUTICALS,INC./RIDGEFIELD-2012-UK-01934UK

PATIENT
  Age: 85 Year
  Sex: Female
  Weight: 59 kg

DRUGS (7)
  1. PRADAXA [Suspect]
     Indication: ATRIAL FIBRILLATION
     Dosage: 220 mg
     Route: 048
     Dates: start: 20120725, end: 20120810
  2. ASPIRIN COATED [Concomitant]
  3. BISOPROLOL [Concomitant]
  4. CANDESARTAN [Concomitant]
  5. DIGOXIN [Concomitant]
  6. OMEPRAZOLE [Concomitant]
  7. WARFARIN [Concomitant]

REACTIONS (2)
  - Dyspepsia [Not Recovered/Not Resolved]
  - Malaise [Not Recovered/Not Resolved]
